FAERS Safety Report 25115539 (Version 1)
Quarter: 2025Q1

REPORT INFORMATION
  Report Type: Report from Study
  Country: CA (occurrence: CA)
  Receive Date: 20250324
  Receipt Date: 20250324
  Transmission Date: 20250409
  Serious: Yes (Other)
  Sender: ABBVIE
  Company Number: CA-ABBVIE-6185304

PATIENT
  Sex: Female

DRUGS (2)
  1. RINVOQ [Suspect]
     Active Substance: UPADACITINIB
     Indication: Crohn^s disease
     Route: 048
  2. RINVOQ [Suspect]
     Active Substance: UPADACITINIB
     Indication: Crohn^s disease
     Route: 048

REACTIONS (11)
  - Stoma creation [Unknown]
  - Stoma site haemorrhage [Unknown]
  - Crohn^s disease [Unknown]
  - Gastrointestinal stoma complication [Unknown]
  - Nausea [Recovering/Resolving]
  - Rectal discharge [Unknown]
  - Arthralgia [Unknown]
  - Fatigue [Unknown]
  - Decreased appetite [Unknown]
  - C-reactive protein increased [Unknown]
  - Haemoglobin abnormal [Unknown]
